FAERS Safety Report 15234951 (Version 1)
Quarter: 2018Q3

REPORT INFORMATION
  Report Type: Spontaneous
  Country: US (occurrence: US)
  Receive Date: 20180803
  Receipt Date: 20180803
  Transmission Date: 20181010
  Serious: Yes (Other)
  Sender: FDA-Public Use
  Company Number: US-ACCORD-065258

PATIENT
  Age: 59 Year
  Sex: Female
  Weight: 118.39 kg

DRUGS (11)
  1. DOCETAXEL ACCORD [Suspect]
     Active Substance: DOCETAXEL
     Indication: BREAST CANCER
     Dates: start: 20110513, end: 20110906
  2. LOVASTATIN. [Concomitant]
     Active Substance: LOVASTATIN
     Dosage: STRENGTH: 40 MG
  3. ATIVAN [Concomitant]
     Active Substance: LORAZEPAM
     Dosage: STRENGTH: 1 MG
  4. MAXZIDE [Concomitant]
     Active Substance: HYDROCHLOROTHIAZIDE\TRIAMTERENE
  5. VENTOLIN HFA [Concomitant]
     Active Substance: ALBUTEROL SULFATE
     Dosage: STRENGTH: 108 MCG
  6. NOVOLOG MIX 70/30 [Concomitant]
     Active Substance: INSULIN ASPART
  7. DEPAKOTE [Concomitant]
     Active Substance: DIVALPROEX SODIUM
     Dosage: STRENGTH: 250 MG
  8. ARIMIDEX [Concomitant]
     Active Substance: ANASTROZOLE
     Dates: start: 2012
  9. ECPIRIN [Concomitant]
     Dosage: STRENGTH: 325 MG
  10. COZAAR [Concomitant]
     Active Substance: LOSARTAN POTASSIUM
  11. ADVAIR DISKUS [Concomitant]
     Active Substance: FLUTICASONE PROPIONATE\SALMETEROL XINAFOATE
     Dosage: STRENGTH:  250?50 MCG/DOSE

REACTIONS (1)
  - Alopecia [Not Recovered/Not Resolved]

NARRATIVE: CASE EVENT DATE: 201203
